FAERS Safety Report 19069666 (Version 2)
Quarter: 2021Q2

REPORT INFORMATION
  Report Type: Spontaneous
  Country: US (occurrence: US)
  Receive Date: 20210329
  Receipt Date: 20210402
  Transmission Date: 20210717
  Serious: No
  Sender: FDA-Public Use
  Company Number: US-TEVA-2021-US-1893302

PATIENT
  Age: 72 Year
  Sex: Male
  Weight: 90.72 kg

DRUGS (2)
  1. TEVA SILDENAFIL [Suspect]
     Active Substance: SILDENAFIL
     Route: 065
  2. TEVA SILDENAFIL [Suspect]
     Active Substance: SILDENAFIL
     Indication: ERECTILE DYSFUNCTION
     Route: 065
     Dates: start: 20210309

REACTIONS (1)
  - Drug effect less than expected [Unknown]

NARRATIVE: CASE EVENT DATE: 202103
